FAERS Safety Report 18122298 (Version 1)
Quarter: 2020Q3

REPORT INFORMATION
  Report Type: Spontaneous
  Country: US (occurrence: US)
  Receive Date: 20200807
  Receipt Date: 20200807
  Transmission Date: 20201103
  Serious: No
  Sender: FDA-Public Use
  Company Number: US-TEVA-2020-US-1805662

PATIENT
  Age: 62 Year
  Sex: Male

DRUGS (1)
  1. AUSTEDO [Suspect]
     Active Substance: DEUTETRABENAZINE
     Dosage: 48 MILLIGRAM DAILY;
     Route: 048
     Dates: start: 201808

REACTIONS (2)
  - Poor quality sleep [Unknown]
  - Dyskinesia [Unknown]

NARRATIVE: CASE EVENT DATE: 20200706
